FAERS Safety Report 6237810-4 (Version None)
Quarter: 2009Q2

REPORT INFORMATION
  Report Type: 
  Country: None (occurrence: None)
  Receive Date: 20090617
  Receipt Date: 20090606
  Transmission Date: 20091009
  Serious: Yes (Life-Threatening, Other)
  Sender: FDA-Public Use
  Company Number: 1000006795

PATIENT
  Age: 35 Year
  Sex: Female

DRUGS (4)
  1. ESCITALOPRAM [Suspect]
     Dosage: (ONCE), ORAL; ORAL
     Route: 048
     Dates: start: 20090606, end: 20090606
  2. AMITRIPTYLINE HCL [Suspect]
     Dosage: (ONCE), ORAL
     Route: 048
     Dates: start: 20090606, end: 20090606
  3. LYRICA [Suspect]
     Dosage: (ONCE), ORAL
     Route: 048
     Dates: start: 20090606, end: 20090606
  4. VENLAFAXINE HCL [Suspect]
     Dosage: (ONCE), ORAL
     Route: 048
     Dates: start: 20090606, end: 20090606

REACTIONS (5)
  - COMA [None]
  - CONVULSION [None]
  - INTENTIONAL OVERDOSE [None]
  - RESPIRATORY DEPRESSION [None]
  - SUICIDE ATTEMPT [None]
